FAERS Safety Report 9324097 (Version 1)
Quarter: 2013Q2

REPORT INFORMATION
  Report Type: Other
  Country: CA (occurrence: CA)
  Receive Date: 20130603
  Receipt Date: 20130603
  Transmission Date: 20140414
  Serious: Yes (Hospitalization)
  Sender: FDA-Public Use
  Company Number: CA-MPIJNJ-2013-03999

PATIENT
  Sex: 0

DRUGS (3)
  1. VELCADE [Suspect]
     Indication: PRODUCT USED FOR UNKNOWN INDICATION
     Dosage: 2.0 MG, CYCLIC
     Route: 042
  2. DEXAMETHASONE [Concomitant]
  3. PREVACID [Concomitant]

REACTIONS (3)
  - Musculoskeletal stiffness [Recovered/Resolved]
  - Neuropathy peripheral [Recovered/Resolved]
  - Pain in extremity [Recovered/Resolved]
